FAERS Safety Report 14137445 (Version 1)
Quarter: 2017Q4

REPORT INFORMATION
  Report Type: Spontaneous
  Country: US (occurrence: US)
  Receive Date: 20171027
  Receipt Date: 20171027
  Transmission Date: 20180321
  Serious: Yes (Other)
  Sender: FDA-Public Use
  Company Number: US-MYLANLABS-2017M1067047

PATIENT
  Age: 22 Year
  Sex: Female

DRUGS (9)
  1. LEVOTHYROXINE SODIUM. [Concomitant]
     Active Substance: LEVOTHYROXINE SODIUM
     Indication: BLOOD THYROID STIMULATING HORMONE INCREASED
     Dosage: 25 MICROGRAMS DAILY
     Route: 065
  2. AZATHIOPRINE. [Suspect]
     Active Substance: AZATHIOPRINE
     Indication: AUTOIMMUNE DERMATITIS
     Route: 065
  3. VALACICLOVIR [Concomitant]
     Active Substance: VALACYCLOVIR HYDROCHLORIDE
     Indication: HERPES SIMPLEX
     Dosage: 1,000 MG DAILY
     Route: 065
  4. AMICETTE [Concomitant]
     Indication: AUTOIMMUNE DERMATITIS
     Dosage: 0.25 MG NORGESTIMATE AND 35 MICROGRAMS ETHINYL ESTRADIOL
     Route: 065
  5. PROGESTERONE. [Concomitant]
     Active Substance: PROGESTERONE
     Indication: PRODUCT USED FOR UNKNOWN INDICATION
     Route: 023
  6. ESTRADIOL. [Suspect]
     Active Substance: ESTRADIOL
     Indication: AUTOIMMUNE DERMATITIS
     Dosage: ADD-BACK THERAPY FOR VASOMOTOR SYMPTOMS
     Route: 065
  7. LEUPRORELIN [Concomitant]
     Active Substance: LEUPROLIDE ACETATE
     Indication: AUTOIMMUNE DERMATITIS
     Route: 065
  8. ESTRADIOL. [Concomitant]
     Active Substance: ESTRADIOL
     Indication: AUTOIMMUNE DERMATITIS
     Dosage: LATER CONTINUED AS ORAL FORMULATION
     Route: 062
  9. PROGESTERONE. [Concomitant]
     Active Substance: PROGESTERONE
     Indication: PRODUCT USED FOR UNKNOWN INDICATION
     Dosage: FOURTH DOSE IN OIL (DOSED EVERY 30 MINUTES)
     Route: 030

REACTIONS (4)
  - Skin reaction [Unknown]
  - Abdominal pain [Unknown]
  - Vomiting [Unknown]
  - Nausea [Unknown]
